FAERS Safety Report 6751411-0 (Version None)
Quarter: 2010Q2

REPORT INFORMATION
  Report Type: 
  Country: None (occurrence: None)
  Receive Date: 20100602
  Receipt Date: 20091019
  Transmission Date: 20101027
  Serious: Yes (Death, Other)
  Sender: FDA-Public Use
  Company Number: DE-ROCHE-662992

PATIENT
  Age: 4 Month
  Sex: Female

DRUGS (9)
  1. GANCICLOVIR SODIUM [Suspect]
     Indication: CYTOMEGALOVIRUS INFECTION
     Route: 065
  2. RIBAVIRIN [Suspect]
     Indication: ANTIVIRAL PROPHYLAXIS
     Route: 065
  3. VALGANCICLOVIR HCL [Suspect]
     Indication: CYTOMEGALOVIRUS INFECTION
     Route: 065
  4. ACYCLOVIR SODIUM [Suspect]
     Indication: ANTIVIRAL PROPHYLAXIS
     Route: 065
  5. FOSCARNET [Suspect]
     Indication: ANTIVIRAL PROPHYLAXIS
     Dosage: DOSE: 1X90 MG/KG/D3 X 60 MG/KG/D
     Route: 065
  6. BUSULFEX [Suspect]
     Indication: BONE MARROW CONDITIONING REGIMEN
     Route: 065
  7. VP-16 [Suspect]
     Indication: BONE MARROW CONDITIONING REGIMEN
     Route: 065
  8. CYCLOPHOSPHAMIDE [Suspect]
     Indication: BONE MARROW CONDITIONING REGIMEN
     Route: 065
  9. ANTI-THYMOCYTE GLOBULIN NOS [Suspect]
     Indication: BONE MARROW CONDITIONING REGIMEN
     Route: 065

REACTIONS (5)
  - CYTOMEGALOVIRUS INFECTION [None]
  - DRUG INEFFECTIVE [None]
  - MICROANGIOPATHY [None]
  - PNEUMONITIS [None]
  - PULMONARY TOXICITY [None]
